FAERS Safety Report 24692296 (Version 1)
Quarter: 2024Q4

REPORT INFORMATION
  Report Type: Spontaneous
  Country: NO (occurrence: NO)
  Receive Date: 20241203
  Receipt Date: 20241203
  Transmission Date: 20250114
  Serious: Yes (Other)
  Sender: GLAXOSMITHKLINE
  Company Number: None

PATIENT

DRUGS (1)
  1. FLUTICASONE [Suspect]
     Active Substance: FLUTICASONE
     Indication: Asthma
     Dosage: 100 ?G, BID
     Route: 055
     Dates: start: 20231120, end: 20241105

REACTIONS (2)
  - Hallucination [Unknown]
  - Nightmare [Unknown]

NARRATIVE: CASE EVENT DATE: 20231120
